FAERS Safety Report 9242107 (Version 2)
Quarter: 2013Q2

REPORT INFORMATION
  Report Type: Report from Study
  Country: US (occurrence: US)
  Receive Date: 20130419
  Receipt Date: 20130606
  Transmission Date: 20140414
  Serious: Yes (Hospitalization, Other)
  Sender: FDA-Public Use
  Company Number: US-ABBOTT-13P-163-1075742-00

PATIENT
  Sex: Female
  Weight: 56.75 kg

DRUGS (5)
  1. HUMIRA PEN [Suspect]
     Indication: CROHN^S DISEASE
     Route: 058
     Dates: start: 200802, end: 200802
  2. HUMIRA PEN [Suspect]
     Route: 058
     Dates: start: 200802, end: 200802
  3. HUMIRA PEN [Suspect]
     Route: 058
     Dates: start: 200803, end: 20130318
  4. HUMIRA PEN [Suspect]
     Route: 058
     Dates: start: 20130325
  5. UNKNOWN STEROIDS [Suspect]
     Indication: CROHN^S DISEASE

REACTIONS (2)
  - Macrocytosis [Not Recovered/Not Resolved]
  - Crohn^s disease [Recovering/Resolving]
